FAERS Safety Report 9017382 (Version 1)
Quarter: 2013Q1

REPORT INFORMATION
  Report Type: Spontaneous
  Country: US (occurrence: US)
  Receive Date: 20130117
  Receipt Date: 20130117
  Transmission Date: 20140127
  Serious: Yes (Other)
  Sender: FDA-Public Use
  Company Number: VU-TEVA-379953USA

PATIENT
  Age: 34 None
  Sex: Female

DRUGS (1)
  1. COPAXONE [Suspect]
     Indication: MULTIPLE SCLEROSIS
     Dates: start: 20121020

REACTIONS (3)
  - Multiple sclerosis relapse [Not Recovered/Not Resolved]
  - Demyelination [Not Recovered/Not Resolved]
  - Hypoaesthesia [Not Recovered/Not Resolved]
